FAERS Safety Report 13627305 (Version 1)
Quarter: 2017Q2

REPORT INFORMATION
  Report Type: Spontaneous
  Country: US (occurrence: US)
  Receive Date: 20170531
  Receipt Date: 20170531
  Transmission Date: 20170830
  Serious: Yes (Other)
  Sender: FDA-Public Use
  Company Number: US-ASTELLAS-1470930

PATIENT
  Sex: Female
  Weight: 58.57 kg

DRUGS (12)
  1. LISINOPRIL. [Concomitant]
     Active Substance: LISINOPRIL
  2. OMEPRAZOLE. [Concomitant]
     Active Substance: OMEPRAZOLE
  3. SIMVASTATIN. [Concomitant]
     Active Substance: SIMVASTATIN
  4. ASPIRIN. [Concomitant]
     Active Substance: ASPIRIN
  5. FOLIC ACID. [Concomitant]
     Active Substance: FOLIC ACID
  6. KLONOPIN [Suspect]
     Active Substance: CLONAZEPAM
     Indication: LUNG NEOPLASM MALIGNANT
     Route: 048
  7. HYDROCHLOROTHIAZIDE. [Concomitant]
     Active Substance: HYDROCHLOROTHIAZIDE
  8. ANASTROZOLE. [Concomitant]
     Active Substance: ANASTROZOLE
  9. FISH OIL [Concomitant]
     Active Substance: FISH OIL
  10. ALPRAZOLAM. [Concomitant]
     Active Substance: ALPRAZOLAM
  11. AMLODIPINE [Concomitant]
     Active Substance: AMLODIPINE BESYLATE
  12. TARCEVA [Suspect]
     Active Substance: ERLOTINIB HYDROCHLORIDE
     Indication: PRODUCT USED FOR UNKNOWN INDICATION
     Route: 048
     Dates: start: 20140916

REACTIONS (4)
  - Decreased appetite [Not Recovered/Not Resolved]
  - Visual impairment [Not Recovered/Not Resolved]
  - Weight decreased [Not Recovered/Not Resolved]
  - Rash [Recovering/Resolving]
